FAERS Safety Report 22180369 (Version 3)
Quarter: 2023Q2

REPORT INFORMATION
  Report Type: Spontaneous
  Country: US (occurrence: US)
  Receive Date: 20230406
  Receipt Date: 20230502
  Transmission Date: 20230722
  Serious: Yes (Other)
  Sender: FDA-Public Use
  Company Number: US-ORGANON-O2304USA000011

PATIENT
  Age: 41 Year
  Sex: Female
  Weight: 151.93 kg

DRUGS (1)
  1. NEXPLANON [Suspect]
     Active Substance: ETONOGESTREL
     Dosage: 1 IMPLANT 68 MG EVERY 3 YEARS IN RIGHT UPPER ARM
     Route: 058
     Dates: start: 20230214

REACTIONS (2)
  - Device dislocation [Recovered/Resolved]
  - No adverse event [Unknown]

NARRATIVE: CASE EVENT DATE: 20230321
